FAERS Safety Report 6285939-7 (Version None)
Quarter: 2009Q3

REPORT INFORMATION
  Report Type: 
  Country: None (occurrence: None)
  Receive Date: 20090728
  Receipt Date: 20090630
  Transmission Date: 20100115
  Serious: No
  Sender: FDA-Public Use
  Company Number: US-BAYER-200925257NA

PATIENT
  Age: 35 Year
  Sex: Male

DRUGS (4)
  1. AVELOX [Suspect]
     Indication: UPPER RESPIRATORY TRACT INFECTION
     Dates: start: 20090101
  2. AVELOX [Suspect]
  3. PREDNISONE TAB [Concomitant]
  4. ADVAIR HFA [Concomitant]

REACTIONS (3)
  - ARTHRALGIA [None]
  - BRONCHITIS [None]
  - PARAESTHESIA [None]
